FAERS Safety Report 19420890 (Version 2)
Quarter: 2021Q2

REPORT INFORMATION
  Report Type: Spontaneous
  Country: US (occurrence: US)
  Receive Date: 20210616
  Receipt Date: 20210617
  Transmission Date: 20210717
  Serious: Yes (Other)
  Sender: FDA-Public Use
  Company Number: US-CELGENEUS-USA-20210603230

PATIENT
  Sex: Female
  Weight: 77.18 kg

DRUGS (1)
  1. REVLIMID [Suspect]
     Active Substance: LENALIDOMIDE
     Indication: ANGIOSARCOMA
     Dosage: 25 MILLIGRAM
     Route: 048
     Dates: start: 20210415, end: 20210517

REACTIONS (1)
  - Angiosarcoma [Unknown]
